FAERS Safety Report 13791027 (Version 1)
Quarter: 2017Q3

REPORT INFORMATION
  Report Type: Spontaneous
  Country: DE (occurrence: DE)
  Receive Date: 20170725
  Receipt Date: 20170725
  Transmission Date: 20171127
  Serious: Yes (Hospitalization)
  Sender: FDA-Public Use
  Company Number: DE-SA-2017SA133018

PATIENT
  Age: 80 Year
  Sex: Female
  Weight: 62 kg

DRUGS (4)
  1. CLOPIDOGREL BISULFATE. [Suspect]
     Active Substance: CLOPIDOGREL BISULFATE
     Route: 048
     Dates: start: 20170430, end: 20170522
  2. PHENPROCOUMON [Suspect]
     Active Substance: PHENPROCOUMON
     Route: 048
     Dates: start: 20170503, end: 20170506
  3. ASPIRIN. [Suspect]
     Active Substance: ASPIRIN
     Route: 048
     Dates: end: 20170522
  4. NO IMP ADMINISTERED IN STUDY ARM (AFLIBERCEPT) [Suspect]
     Active Substance: AFLIBERCEPT
     Route: 065

REACTIONS (1)
  - Syncope [Recovered/Resolved]

NARRATIVE: CASE EVENT DATE: 20170522
